FAERS Safety Report 7381162-3 (Version None)
Quarter: 2011Q1

REPORT INFORMATION
  Report Type: 
  Country: None (occurrence: None)
  Receive Date: 20110329
  Receipt Date: 20110321
  Transmission Date: 20110831
  Serious: Yes (Hospitalization)
  Sender: FDA-Public Use
  Company Number: FR-TEVA-272525ISR

PATIENT
  Sex: Male
  Weight: 61 kg

DRUGS (6)
  1. DEXAMETHASONE [Suspect]
     Dates: start: 20100928
  2. LENALIDOMIDE (CC-5013) [Suspect]
     Route: 048
     Dates: start: 20100928
  3. ACETYLSALICYLATE LYSINE [Concomitant]
     Indication: THROMBOSIS PROPHYLAXIS
     Route: 048
     Dates: start: 20091112
  4. DEXAMETHASONE [Suspect]
     Indication: MULTIPLE MYELOMA
     Dates: start: 20100819
  5. PROPOFAN [Concomitant]
     Indication: PAIN
     Route: 048
     Dates: start: 20090601
  6. LENALIDOMIDE (CC-5013) [Suspect]
     Indication: MULTIPLE MYELOMA
     Route: 048
     Dates: start: 20100819, end: 20100915

REACTIONS (1)
  - PNEUMONIA [None]
